FAERS Safety Report 21650800 (Version 1)
Quarter: 2022Q4

REPORT INFORMATION
  Report Type: Spontaneous
  Country: CA (occurrence: None)
  Receive Date: 20221128
  Receipt Date: 20221128
  Transmission Date: 20230112
  Serious: Yes (Hospitalization)
  Sender: FDA-Public Use
  Company Number: CA-ROCHE-3226304

PATIENT
  Age: 75 Year
  Sex: Female
  Weight: 60 kg

DRUGS (22)
  1. BEVACIZUMAB [Suspect]
     Active Substance: BEVACIZUMAB
     Indication: Colorectal cancer
     Route: 065
  2. FLUOROURACIL [Suspect]
     Active Substance: FLUOROURACIL
     Indication: Colorectal cancer
     Route: 065
  3. FLUOROURACIL [Suspect]
     Active Substance: FLUOROURACIL
     Route: 065
  4. LEUCOVORIN [Suspect]
     Active Substance: LEUCOVORIN
     Indication: Colorectal cancer
     Route: 065
  5. IRINOTECAN HYDROCHLORIDE [Suspect]
     Active Substance: IRINOTECAN HYDROCHLORIDE
     Indication: Colorectal cancer
     Route: 042
  6. LOPERAMIDE [Concomitant]
     Active Substance: LOPERAMIDE
  7. LORAZEPAM [Concomitant]
     Active Substance: LORAZEPAM
  8. MONTELUKAST [Concomitant]
     Active Substance: MONTELUKAST SODIUM
  9. MORPHINE [Concomitant]
     Active Substance: MORPHINE
  10. ONDANSETRON [Concomitant]
     Active Substance: ONDANSETRON
  11. OXAZEPAM [Concomitant]
     Active Substance: OXAZEPAM
  12. PANTOPRAZOLE [Concomitant]
     Active Substance: PANTOPRAZOLE
  13. PROCHLORPERAZINE [Concomitant]
     Active Substance: PROCHLORPERAZINE
  14. SANDOSTATIN [Concomitant]
     Active Substance: OCTREOTIDE ACETATE
  15. ACETAMINOPHEN [Concomitant]
     Active Substance: ACETAMINOPHEN
  16. ATROPINE [Concomitant]
     Active Substance: ATROPINE
  17. CITALOPRAM [Concomitant]
     Active Substance: CITALOPRAM HYDROBROMIDE
  18. DECADRON [Concomitant]
     Active Substance: DEXAMETHASONE
  19. DENOSUMAB [Concomitant]
     Active Substance: DENOSUMAB
     Route: 058
  20. DEXAMETHASONE [Concomitant]
     Active Substance: DEXAMETHASONE
  21. DIMENHYDRINATE [Concomitant]
     Active Substance: DIMENHYDRINATE
  22. FERROUS SULFATE [Concomitant]
     Active Substance: FERROUS SULFATE

REACTIONS (2)
  - Febrile neutropenia [Recovered/Resolved]
  - Large intestinal obstruction [Recovered/Resolved]
